FAERS Safety Report 20395792 (Version 2)
Quarter: 2024Q4

REPORT INFORMATION
  Report Type: Spontaneous
  Country: US (occurrence: US)
  Receive Date: 20220130
  Receipt Date: 20241003
  Transmission Date: 20250114
  Serious: Yes (Death, Other)
  Sender: PURDUE
  Company Number: US-PURDUE PHARMA-USA-2021-0271761

PATIENT
  Age: 26 Year
  Sex: Male

DRUGS (2)
  1. OXYCONTIN [Suspect]
     Active Substance: OXYCODONE HYDROCHLORIDE
     Indication: Product used for unknown indication
     Route: 048
  2. FENTANYL [Suspect]
     Active Substance: FENTANYL
     Indication: Product used for unknown indication
     Dosage: UNK
     Route: 065

REACTIONS (3)
  - Toxicity to various agents [Fatal]
  - Counterfeit product administered [Fatal]
  - Drug abuse [Unknown]

NARRATIVE: CASE EVENT DATE: 20210218
